FAERS Safety Report 15475278 (Version 1)
Quarter: 2018Q4

REPORT INFORMATION
  Report Type: Spontaneous
  Country: US (occurrence: US)
  Receive Date: 20181008
  Receipt Date: 20181008
  Transmission Date: 20190205
  Serious: No
  Sender: FDA-Public Use
  Company Number: US-CHILTERN-US-2018-000091

PATIENT
  Age: 65 Year
  Sex: Female

DRUGS (3)
  1. VYZULTA [Concomitant]
     Active Substance: LATANOPROSTENE BUNOD
     Dosage: UNK
     Route: 047
  2. RHOPRESSA [Suspect]
     Active Substance: NETARSUDIL MESYLATE
     Indication: GLAUCOMA
     Dosage: 1 GTT BOTH EYES, QD
     Route: 047
     Dates: start: 201805
  3. BETIMOL [Concomitant]
     Active Substance: TIMOLOL
     Dosage: UNK
     Route: 047

REACTIONS (2)
  - Visual acuity reduced [Recovered/Resolved]
  - Intraocular pressure increased [Recovered/Resolved]

NARRATIVE: CASE EVENT DATE: 201807
